FAERS Safety Report 9500566 (Version 1)
Quarter: 2013Q3

REPORT INFORMATION
  Report Type: Spontaneous
  Country: US (occurrence: None)
  Receive Date: 20130904
  Receipt Date: 20130904
  Transmission Date: 20140515
  Serious: No
  Sender: FDA-Public Use
  Company Number: None

PATIENT
  Age: 69 None
  Sex: Female

DRUGS (7)
  1. TRI COR FENOFIBRATE [Suspect]
     Indication: BLOOD TRIGLYCERIDES INCREASED
     Route: 048
     Dates: start: 20130412, end: 20130820
  2. HYDROCHLOROTHIAZIDE [Concomitant]
  3. CENTRUM SILVER [Concomitant]
  4. FISH OIL [Concomitant]
  5. FLOVENT [Concomitant]
  6. FLUOROMETHOLONE EYE DROPS [Concomitant]
  7. ALLEGRA [Concomitant]

REACTIONS (5)
  - Back pain [None]
  - Dysstasia [None]
  - Gait disturbance [None]
  - Pain in extremity [None]
  - Constipation [None]
